FAERS Safety Report 11443100 (Version 1)
Quarter: 2015Q3

REPORT INFORMATION
  Report Type: Spontaneous
  Country: US (occurrence: US)
  Receive Date: 20150901
  Receipt Date: 20150901
  Transmission Date: 20151125
  Serious: Yes (Death, Other)
  Sender: FDA-Public Use
  Company Number: US-ASTRAZENECA-2015SE82764

PATIENT
  Age: 610 Month
  Sex: Female
  Weight: 70 kg

DRUGS (11)
  1. HYDROCODONE/ACETAMINOPHEN [Concomitant]
     Active Substance: ACETAMINOPHEN\HYDROCODONE
     Dosage: TAKE 1-2 TABLETS BY MOUTH EVERY 4 HOURS AS NEEDED
     Route: 048
     Dates: start: 20121005
  2. METFORMIN [Concomitant]
     Active Substance: METFORMIN HYDROCHLORIDE
     Dates: start: 20110614
  3. VICTOZA [Concomitant]
     Active Substance: LIRAGLUTIDE
     Dosage: 18 MG/3 ML
     Route: 058
     Dates: start: 20120503
  4. BYETTA [Suspect]
     Active Substance: EXENATIDE
     Indication: TYPE 2 DIABETES MELLITUS
     Route: 065
     Dates: start: 20071217
  5. GLIPIZIDE. [Concomitant]
     Active Substance: GLIPIZIDE
     Route: 048
     Dates: start: 20111101
  6. LEVOFLOXACIN. [Concomitant]
     Active Substance: LEVOFLOXACIN
     Route: 048
     Dates: start: 20121001
  7. CEPHALEXIN. [Concomitant]
     Active Substance: CEPHALEXIN
     Route: 048
     Dates: start: 20121029
  8. BYETTA [Suspect]
     Active Substance: EXENATIDE
     Indication: TYPE 2 DIABETES MELLITUS
     Route: 065
     Dates: start: 20120123
  9. SIMVASTATIN. [Concomitant]
     Active Substance: SIMVASTATIN
     Route: 048
     Dates: start: 20111019
  10. CITALOPRAM [Concomitant]
     Active Substance: CITALOPRAM HYDROBROMIDE
     Route: 048
     Dates: start: 20111021
  11. ONDANSETRON [Concomitant]
     Active Substance: ONDANSETRON
     Route: 048
     Dates: start: 20121018

REACTIONS (6)
  - Bile duct obstruction [Unknown]
  - Pancreatitis [Unknown]
  - Pancreatic carcinoma [Fatal]
  - Metastases to liver [Fatal]
  - Cachexia [Fatal]
  - Jaundice cholestatic [Unknown]

NARRATIVE: CASE EVENT DATE: 201209
